FAERS Safety Report 17906816 (Version 3)
Quarter: 2020Q2

REPORT INFORMATION
  Report Type: Spontaneous
  Country: US (occurrence: US)
  Receive Date: 20200617
  Receipt Date: 20200623
  Transmission Date: 20200714
  Serious: Yes (Death)
  Sender: FDA-Public Use
  Company Number: US-PFIZER INC-2020234404

PATIENT
  Age: 59 Year
  Sex: Male

DRUGS (4)
  1. XALKORI [Suspect]
     Active Substance: CRIZOTINIB
     Indication: CHOLANGIOCARCINOMA
  2. XALKORI [Suspect]
     Active Substance: CRIZOTINIB
     Indication: METASTASES TO LIVER
  3. XALKORI [Suspect]
     Active Substance: CRIZOTINIB
     Indication: ASCITES
  4. XALKORI [Suspect]
     Active Substance: CRIZOTINIB
     Indication: OESOPHAGEAL CARCINOMA
     Dosage: 250 MG

REACTIONS (3)
  - Off label use [Unknown]
  - Death [Fatal]
  - Product use in unapproved indication [Unknown]

NARRATIVE: CASE EVENT DATE: 20200510
